FAERS Safety Report 4481061-0 (Version None)
Quarter: 2004Q4

REPORT INFORMATION
  Report Type: 
  Country: None (occurrence: None)
  Receive Date: 20041021
  Receipt Date: 20041012
  Transmission Date: 20050328
  Serious: Yes (Hospitalization)
  Sender: FDA-Public Use
  Company Number: JP-ROCHE-383255

PATIENT
  Sex: Female

DRUGS (2)
  1. XELODA [Suspect]
     Indication: BREAST CANCER
     Route: 048
     Dates: start: 20030615, end: 20040715
  2. HERCEPTIN [Concomitant]
     Indication: BREAST CANCER
     Route: 041

REACTIONS (10)
  - BRONCHITIS [None]
  - DIARRHOEA [None]
  - DRUG INEFFECTIVE [None]
  - INFLUENZA LIKE ILLNESS [None]
  - LOCALISED EXFOLIATION [None]
  - NAIL DISORDER [None]
  - OEDEMA PERIPHERAL [None]
  - PLEURITIC PAIN [None]
  - SEASONAL ALLERGY [None]
  - SWELLING [None]
